FAERS Safety Report 8840884 (Version 2)
Quarter: 2012Q4

REPORT INFORMATION
  Report Type: 
  Country: FR (occurrence: FR)
  Receive Date: 20121015
  Receipt Date: 20121017
  Transmission Date: 20130627
  Serious: Yes (Other)
  Sender: FDA-Public Use
  Company Number: PHHY2012FR090925

PATIENT
  Sex: Female
  Weight: 57 kg

DRUGS (2)
  1. ACLASTA/ZOLEDRONATE [Suspect]
     Indication: OSTEOPOROSIS
     Route: 042
     Dates: start: 201201
  2. UVEDOSE [Concomitant]
     Indication: OSTEOPOROSIS
     Dosage: 1 vial every 3 months

REACTIONS (2)
  - Breast cancer [Not Recovered/Not Resolved]
  - Breast calcifications [Not Recovered/Not Resolved]
